FAERS Safety Report 7313499-8 (Version None)
Quarter: 2011Q1

REPORT INFORMATION
  Report Type: 
  Country: None (occurrence: None)
  Receive Date: 20110225
  Receipt Date: 20110215
  Transmission Date: 20110831
  Serious: Yes (Other)
  Sender: FDA-Public Use
  Company Number: US-PFIZER INC-2010159753

PATIENT
  Sex: Female

DRUGS (2)
  1. VENLAFAXINE HCL [Suspect]
     Dosage: UNK
  2. EFFEXOR [Suspect]
     Dosage: 150 MG, UNK

REACTIONS (2)
  - ANXIETY [None]
  - SUICIDAL IDEATION [None]
